FAERS Safety Report 5983112-0 (Version None)
Quarter: 2008Q4

REPORT INFORMATION
  Report Type: 
  Country: None (occurrence: None)
  Receive Date: 20081208
  Receipt Date: 20081126
  Transmission Date: 20090506
  Serious: Yes (Life-Threatening, Hospitalization)
  Sender: FDA-Public Use
  Company Number: FR-TEVA-181601ISR

PATIENT
  Sex: Male

DRUGS (15)
  1. FLUOROURACIL [Suspect]
     Indication: PANCREATIC CARCINOMA
     Route: 042
     Dates: start: 20081015, end: 20081028
  2. FOLINIC ACID [Suspect]
     Indication: PANCREATIC CARCINOMA
     Dates: start: 20081015, end: 20081028
  3. IRINOTECAN HYDROCHLORIDE [Suspect]
     Indication: PANCREATIC CARCINOMA
     Route: 042
     Dates: start: 20081015, end: 20081028
  4. BMS690514 [Suspect]
     Indication: PANCREATIC CARCINOMA
     Route: 048
     Dates: start: 20081022, end: 20081103
  5. METFORMIN HCL [Concomitant]
     Dates: start: 20070301
  6. ACETAMINOPHEN W/ CODEINE [Concomitant]
     Dates: start: 20080919
  7. PREGABALIN [Concomitant]
     Dates: start: 20080926
  8. DI-ANTALVIC (DEXTROPROPOXYPHENE HCL + APAP) [Concomitant]
     Dates: start: 20081015
  9. SMECTA [Concomitant]
     Dates: start: 20081030, end: 20081030
  10. LOPERAMIDE HYDROCHLORIDE [Concomitant]
     Dates: start: 20081030, end: 20081030
  11. METHYLPREDNISOLONE 16MG TAB [Concomitant]
     Dates: start: 20081030
  12. MORPHINE SULFATE [Concomitant]
     Dates: start: 20081015, end: 20081015
  13. GRANISETRON [Concomitant]
     Dates: start: 20081015, end: 20081016
  14. ACETAMINOPHEN [Concomitant]
     Dates: start: 20081028, end: 20081028
  15. ATROPINE [Concomitant]
     Dates: start: 20081029, end: 20081029

REACTIONS (3)
  - COMA [None]
  - NEPHROPATHY TOXIC [None]
  - THROMBOCYTOPENIA [None]
